FAERS Safety Report 9954155 (Version 1)
Quarter: 2014Q1

REPORT INFORMATION
  Report Type: Report from Study
  Country: US (occurrence: US)
  Receive Date: 20140304
  Receipt Date: 20140304
  Transmission Date: 20141002
  Serious: No
  Sender: FDA-Public Use
  Company Number: US-ABBVIE-13P-163-1078689-00

PATIENT
  Age: 55 Year
  Sex: Male

DRUGS (3)
  1. HUMIRA [Suspect]
     Indication: COLITIS ULCERATIVE
     Dates: start: 20130104
  2. SIMVASTATIN [Concomitant]
     Indication: BLOOD CHOLESTEROL ABNORMAL
     Dosage: PATIENT STATED HASN^T TAKEN FOR 2 WEEKS BECAUSE FORGOT
  3. SIMVASTATIN [Concomitant]
     Indication: DEPRESSION

REACTIONS (1)
  - Injection site pain [Recovered/Resolved]
